FAERS Safety Report 6343614-4 (Version None)
Quarter: 2009Q3

REPORT INFORMATION
  Report Type: 
  Country: None (occurrence: None)
  Receive Date: 20090908
  Receipt Date: 20090902
  Transmission Date: 20100115
  Serious: Yes (Hospitalization)
  Sender: FDA-Public Use
  Company Number: AT-AVENTIS-200915264EU

PATIENT
  Age: 32 Year
  Sex: Female

DRUGS (1)
  1. LOVENOX [Suspect]
     Indication: FACTOR V DEFICIENCY
     Route: 058
     Dates: start: 20090327, end: 20090701

REACTIONS (3)
  - AMNIORRHEXIS [None]
  - DRUG EXPOSURE DURING PREGNANCY [None]
  - THROMBOCYTOPENIA [None]
